FAERS Safety Report 23874011 (Version 2)
Quarter: 2024Q3

REPORT INFORMATION
  Report Type: Spontaneous
  Country: BR (occurrence: BR)
  Receive Date: 20240520
  Receipt Date: 20240718
  Transmission Date: 20241016
  Serious: Yes (Other)
  Sender: ROCHE
  Company Number: BR-002147023-NVSC2024BR100057

PATIENT
  Sex: Female

DRUGS (1)
  1. XOLAIR [Suspect]
     Active Substance: OMALIZUMAB
     Indication: Chronic spontaneous urticaria
     Route: 065

REACTIONS (3)
  - Angioedema [Unknown]
  - Dysphonia [Unknown]
  - Laryngeal oedema [Unknown]
